FAERS Safety Report 13894834 (Version 4)
Quarter: 2017Q4

REPORT INFORMATION
  Report Type: Report from Study
  Country: DE (occurrence: DE)
  Receive Date: 20170823
  Receipt Date: 20171129
  Transmission Date: 20180320
  Serious: Yes (Hospitalization)
  Sender: FDA-Public Use
  Company Number: DE-BIOGEN-2017BI00427622

PATIENT
  Age: 31 Year
  Sex: Female
  Weight: 55 kg

DRUGS (3)
  1. ZINBRYTA [Suspect]
     Active Substance: DACLIZUMAB
     Indication: RELAPSING-REMITTING MULTIPLE SCLEROSIS
     Route: 058
     Dates: start: 20170215
  2. NOVALGIN [Concomitant]
     Active Substance: METAMIZOLE SODIUM
     Indication: MIGRAINE
     Route: 065
     Dates: start: 20170404, end: 20170405
  3. DEKRISTOL [Concomitant]
     Active Substance: CHOLECALCIFEROL
     Indication: VITAMIN D DEFICIENCY
     Route: 065
     Dates: start: 20141217

REACTIONS (2)
  - Pain [Not Recovered/Not Resolved]
  - Multiple sclerosis relapse [Recovered/Resolved]

NARRATIVE: CASE EVENT DATE: 20170407
